FAERS Safety Report 4492850-0 (Version None)
Quarter: 2004Q4

REPORT INFORMATION
  Report Type: 
  Country: None (occurrence: None)
  Receive Date: 20041102
  Receipt Date: 20041102
  Transmission Date: 20050328
  Serious: Yes (Hospitalization)
  Sender: FDA-Public Use
  Company Number: None

PATIENT
  Age: 24 Year
  Sex: Female
  Weight: 84.8226 kg

DRUGS (1)
  1. DEPO-PROVERA [Suspect]
     Indication: CONTRACEPTION
     Dosage: 1 SHOT THREE MONTHS
     Dates: start: 20020701, end: 20040715

REACTIONS (4)
  - OVARIAN CYST [None]
  - THROMBOSIS [None]
  - UTERINE SPASM [None]
  - VAGINAL HAEMORRHAGE [None]
